FAERS Safety Report 5148344-2 (Version None)
Quarter: 2006Q4

REPORT INFORMATION
  Report Type: 
  Country: None (occurrence: None)
  Receive Date: 20061106
  Receipt Date: 20061024
  Transmission Date: 20070319
  Serious: Yes (Other)
  Sender: FDA-Public Use
  Company Number: 2006130828

PATIENT
  Age: 52 Year
  Sex: Male

DRUGS (1)
  1. LYRICA [Suspect]
     Indication: NEURALGIA
     Dosage: 300 MG (300 MG, 2 IN 1 D) ORAL
     Route: 048
     Dates: start: 20060101, end: 20060101

REACTIONS (1)
  - INTESTINAL OBSTRUCTION [None]
